FAERS Safety Report 21098858 (Version 1)
Quarter: 2022Q3

REPORT INFORMATION
  Report Type: Spontaneous
  Country: US (occurrence: None)
  Receive Date: 20220718
  Receipt Date: 20220718
  Transmission Date: 20221026
  Serious: No
  Sender: FDA-Public Use
  Company Number: None

PATIENT
  Sex: Female

DRUGS (2)
  1. SUMATRIPTAN [Suspect]
     Active Substance: SUMATRIPTAN
  2. RIZATRIPTAN [Suspect]
     Active Substance: RIZATRIPTAN

REACTIONS (2)
  - Sedation [None]
  - Chest pain [None]
